FAERS Safety Report 7904948-2 (Version None)
Quarter: 2011Q4

REPORT INFORMATION
  Report Type: 
  Country: None (occurrence: None)
  Receive Date: 20111109
  Receipt Date: 20111102
  Transmission Date: 20120403
  Serious: Yes (Other)
  Sender: FDA-Public Use
  Company Number: PHHY2011FR82690

PATIENT
  Sex: Male

DRUGS (1)
  1. GLEEVEC [Suspect]
     Indication: CHRONIC MYELOID LEUKAEMIA
     Dosage: 400 MG, QD
     Route: 048
     Dates: start: 20110503

REACTIONS (6)
  - SLEEP DISORDER [None]
  - MYALGIA [None]
  - ALANINE AMINOTRANSFERASE DECREASED [None]
  - DISTURBANCE IN ATTENTION [None]
  - HYPOTENSION [None]
  - ASPARTATE AMINOTRANSFERASE DECREASED [None]
